FAERS Safety Report 11831337 (Version 1)
Quarter: 2015Q4

REPORT INFORMATION
  Report Type: Spontaneous
  Country: US (occurrence: None)
  Receive Date: 20151211
  Receipt Date: 20151211
  Transmission Date: 20160305
  Serious: Yes (Life-Threatening, Hospitalization, Disabling)
  Sender: FDA-Public Use
  Company Number: None

PATIENT
  Age: 24 Year
  Sex: Male
  Weight: 54.43 kg

DRUGS (1)
  1. BETADINE [Suspect]
     Active Substance: POVIDONE-IODINE

REACTIONS (5)
  - Foreign body [None]
  - Respiratory failure [None]
  - Pyrexia [None]
  - Intestinal obstruction [None]
  - Septic shock [None]

NARRATIVE: CASE EVENT DATE: 20151125
